FAERS Safety Report 8805708 (Version 1)
Quarter: 2012Q4

REPORT INFORMATION
  Report Type: 
  Country: GB (occurrence: GB)
  Receive Date: 20120924
  Receipt Date: 20120924
  Transmission Date: 20130627
  Serious: Yes (Hospitalization, Other)
  Sender: FDA-Public Use
  Company Number: GB-TEVA-358875ISR

PATIENT
  Age: 90 Year
  Sex: Female

DRUGS (5)
  1. TRIMETHOPRIM [Suspect]
     Indication: URINARY TRACT INFECTION
     Route: 048
     Dates: start: 20120819, end: 20120823
  2. CALCEOS [Concomitant]
  3. OMEPRAZOLE [Concomitant]
  4. FLUOXETINE [Concomitant]
  5. SOLIFENACIN [Concomitant]

REACTIONS (4)
  - Pancytopenia [Recovering/Resolving]
  - White blood cell count decreased [Recovering/Resolving]
  - Neutrophil count decreased [Recovering/Resolving]
  - Blood folate decreased [Recovering/Resolving]
